FAERS Safety Report 16698633 (Version 1)
Quarter: 2019Q3

REPORT INFORMATION
  Report Type: Spontaneous
  Country: FR (occurrence: FR)
  Receive Date: 20190813
  Receipt Date: 20190813
  Transmission Date: 20191004
  Serious: Yes (Hospitalization, Other)
  Sender: FDA-Public Use
  Company Number: FR-MYLANLABS-2019M1075428

PATIENT
  Age: 73 Year
  Sex: Male
  Weight: 81.5 kg

DRUGS (4)
  1. TRAMADOL. [Suspect]
     Active Substance: TRAMADOL
     Indication: PAIN
     Dosage: 200 MILLIGRAM, QD
     Route: 048
  2. PEPPERMINT OIL [Interacting]
     Active Substance: PEPPERMINT OIL
     Indication: GENERAL PHYSICAL HEALTH DETERIORATION
     Dosage: NON PR?CIS?E
     Route: 048
     Dates: start: 20190206, end: 20190206
  3. THYME OIL [Interacting]
     Active Substance: THYME OIL
     Indication: GENERAL PHYSICAL HEALTH DETERIORATION
     Dosage: NON PR?CIS?E
     Route: 048
     Dates: start: 20190206, end: 20190206
  4. EUCALYPTUS /01648407/ [Interacting]
     Active Substance: EUCALYPTUS OIL
     Indication: GENERAL PHYSICAL HEALTH DETERIORATION
     Dosage: NON PR?CIS?E
     Route: 048
     Dates: start: 20190206, end: 20190206

REACTIONS (5)
  - Drug interaction [Unknown]
  - Urinary incontinence [Recovered/Resolved]
  - Depressed level of consciousness [Recovered/Resolved]
  - Retrograde amnesia [Recovered/Resolved]
  - Confusional state [Recovered/Resolved]

NARRATIVE: CASE EVENT DATE: 20190206
